FAERS Safety Report 6020376-1 (Version None)
Quarter: 2008Q4

REPORT INFORMATION
  Report Type: 
  Country: None (occurrence: None)
  Receive Date: 20081226
  Receipt Date: 20081217
  Transmission Date: 20090506
  Serious: Yes (Hospitalization, Disabling, Other)
  Sender: FDA-Public Use
  Company Number: US-MERCK-0509USA04015

PATIENT
  Age: 74 Year
  Sex: Female
  Weight: 59 kg

DRUGS (3)
  1. FOSAMAX [Suspect]
     Indication: OSTEOPOROSIS
     Route: 048
     Dates: start: 19961001, end: 20040929
  2. PREMPRO [Concomitant]
     Indication: HORMONE THERAPY
     Route: 065
     Dates: start: 19670101
  3. NEXIUM [Concomitant]
     Route: 065

REACTIONS (51)
  - ABDOMINAL PAIN UPPER [None]
  - ADENOMA BENIGN [None]
  - ANAEMIA [None]
  - ANXIETY [None]
  - ASTHMA [None]
  - ATRIOVENTRICULAR BLOCK FIRST DEGREE [None]
  - BACK PAIN [None]
  - BREATHING-RELATED SLEEP DISORDER [None]
  - BRONCHITIS [None]
  - CANDIDIASIS [None]
  - CARDIAC DISORDER [None]
  - CHEST PAIN [None]
  - CHRONIC OBSTRUCTIVE PULMONARY DISEASE [None]
  - CONJUNCTIVAL HYPERAEMIA [None]
  - CONJUNCTIVITIS [None]
  - CONVULSION [None]
  - DEHYDRATION [None]
  - DEPRESSION [None]
  - DIVERTICULUM [None]
  - DYSPEPSIA [None]
  - ESSENTIAL HYPERTENSION [None]
  - EXOSTOSIS [None]
  - GASTROENTERITIS [None]
  - GASTROINTESTINAL HAEMORRHAGE [None]
  - HYPERLIPIDAEMIA [None]
  - HYPERTENSION [None]
  - HYPOKALAEMIA [None]
  - INSOMNIA [None]
  - IRRITABLE BOWEL SYNDROME [None]
  - MANIA [None]
  - MEIBOMIANITIS [None]
  - MENTAL STATUS CHANGES [None]
  - MUSCLE SPASMS [None]
  - MUSCULOSKELETAL DISORDER [None]
  - MUSCULOSKELETAL PAIN [None]
  - ORAL TORUS [None]
  - OSTEOARTHRITIS [None]
  - OSTEOMYELITIS [None]
  - OSTEONECROSIS [None]
  - PAIN IN EXTREMITY [None]
  - PANIC ATTACK [None]
  - PERIODONTITIS [None]
  - PNEUMONIA [None]
  - PSYCHOTIC DISORDER [None]
  - RASH [None]
  - SPINAL OSTEOARTHRITIS [None]
  - SWELLING [None]
  - TONGUE ULCERATION [None]
  - TRANSIENT ISCHAEMIC ATTACK [None]
  - TRAUMATIC ULCER [None]
  - WEIGHT DECREASED [None]
